FAERS Safety Report 24588108 (Version 4)
Quarter: 2024Q4

REPORT INFORMATION
  Report Type: Spontaneous
  Country: GB (occurrence: GB)
  Receive Date: 20241107
  Receipt Date: 20241223
  Transmission Date: 20250115
  Serious: Yes (Hospitalization, Other)
  Sender: MYLAN
  Company Number: GB-MYLANLABS-2024M1098179

PATIENT
  Age: 55 Year
  Sex: Male

DRUGS (11)
  1. CLOZARIL [Suspect]
     Active Substance: CLOZAPINE
     Indication: Schizophrenia
     Dosage: QD (275MG OM AND 300MG ON)
     Route: 048
     Dates: start: 20171101, end: 20241023
  2. CLOZARIL [Suspect]
     Active Substance: CLOZAPINE
     Dosage: QD (275MG OM AND 300MG ON)
     Route: 048
     Dates: start: 20241110
  3. APIXABAN [Concomitant]
     Active Substance: APIXABAN
     Dosage: 5 MILLIGRAM, BID (STARTED AFTER ACUTE ADMISSION)
     Route: 065
  4. MORPHINE [Concomitant]
     Active Substance: MORPHINE
     Dosage: 10 MILLIGRAM, PRN (4 HOURLY)
     Route: 065
  5. LURASIDONE [Concomitant]
     Active Substance: LURASIDONE
     Dosage: 74 MILLIGRAM, QD
     Route: 065
  6. MORPHINE SULFATE [Concomitant]
     Active Substance: MORPHINE SULFATE
     Dosage: 30 MILLIGRAM, BID
     Route: 065
  7. NITROFURANTOIN [Concomitant]
     Active Substance: NITROFURANTOIN
     Dosage: 50 MILLIGRAM, QD
     Route: 065
  8. VENLAFAXINE [Concomitant]
     Active Substance: VENLAFAXINE HYDROCHLORIDE
     Dosage: 150 MILLIGRAM
     Route: 065
  9. OMEPRAZOLE [Concomitant]
     Active Substance: OMEPRAZOLE
     Dosage: 20 MILLIGRAM
     Route: 065
  10. DIHYDROCODEINE [Concomitant]
     Active Substance: DIHYDROCODEINE
     Dosage: 90 MILLIGRAM, BID
     Route: 065
  11. PIZOTYLINE [Concomitant]
     Active Substance: PIZOTYLINE
     Dosage: 1000 MICROGRAM, QD (NIGHT)
     Route: 065

REACTIONS (14)
  - Nephrostomy [Unknown]
  - Pulmonary embolism [Unknown]
  - Pollakiuria [Unknown]
  - Respiratory failure [Unknown]
  - Chronic kidney disease [Unknown]
  - Hydronephrosis [Unknown]
  - Hydroureter [Unknown]
  - Renal failure [Unknown]
  - Hypernatraemia [Unknown]
  - Withdrawal syndrome [Unknown]
  - Infection [Unknown]
  - Hypotension [Unknown]
  - Tremor [Unknown]
  - Therapy interrupted [Recovered/Resolved]

NARRATIVE: CASE EVENT DATE: 20240501
